FAERS Safety Report 8399304-X (Version None)
Quarter: 2012Q2

REPORT INFORMATION
  Report Type: 
  Country: None (occurrence: None)
  Receive Date: 20120531
  Receipt Date: 20120522
  Transmission Date: 20120825
  Serious: Yes (Other)
  Sender: FDA-Public Use
  Company Number: US-JNJFOC-20120518442

PATIENT
  Sex: Female

DRUGS (1)
  1. REMICADE [Suspect]
     Indication: PRODUCT USED FOR UNKNOWN INDICATION
     Route: 042
     Dates: start: 20120411, end: 20120411

REACTIONS (6)
  - HYPOTHYROIDISM [None]
  - DYSPNOEA [None]
  - DIZZINESS [None]
  - TOOTH REPAIR [None]
  - FATIGUE [None]
  - PRURITUS [None]
